FAERS Safety Report 5247592-0 (Version None)
Quarter: 2007Q1

REPORT INFORMATION
  Report Type: 
  Country: None (occurrence: None)
  Receive Date: 20070227
  Receipt Date: 20070216
  Transmission Date: 20070707
  Serious: Yes (Death)
  Sender: FDA-Public Use
  Company Number: NL-AVENTIS-200711360GDDC

PATIENT
  Age: 67 Year
  Sex: Female

DRUGS (2)
  1. DOCETAXEL [Suspect]
     Indication: OVARIAN CANCER
     Route: 042
     Dates: start: 20061219, end: 20061219
  2. CARBOPLATIN [Suspect]
     Indication: OVARIAN CANCER
     Dosage: DOSE: 5 AUC
     Route: 042
     Dates: start: 20061219, end: 20061219

REACTIONS (1)
  - ISCHAEMIC STROKE [None]
